FAERS Safety Report 8408147-X (Version None)
Quarter: 2012Q2

REPORT INFORMATION
  Report Type: 
  Country: None (occurrence: None)
  Receive Date: 20120604
  Receipt Date: 20120530
  Transmission Date: 20120825
  Serious: Yes (Hospitalization)
  Sender: FDA-Public Use
  Company Number: FR-PFIZER INC-2012062779

PATIENT
  Age: 91 Year
  Sex: Female

DRUGS (11)
  1. FERROUS SULFATE TAB [Concomitant]
     Dosage: 2 DF DAILY
  2. PANTOPRAZOLE [Concomitant]
     Dosage: 1 DF DAILY
  3. XANAX [Concomitant]
     Dosage: 0.5 DF DAILY
  4. FUROSEMIDE [Concomitant]
     Dosage: 20 MG, 1X/DAY
  5. BISOPROLOL FUMARATE [Suspect]
     Indication: CARDIAC FAILURE
     Dosage: 5 MG DAILY
     Route: 048
     Dates: start: 20111209, end: 20111216
  6. ATHYMIL [Concomitant]
     Dosage: 1 DF DAILY
  7. ASPIRIN [Concomitant]
     Dosage: 1 DF DAILY
  8. PARACETAMOL [Concomitant]
     Dosage: 5 DF DAILY
  9. DEXERYL [Concomitant]
  10. AMLODIPINE BESYLATE [Suspect]
     Indication: CARDIAC FAILURE
     Dosage: UNK
     Route: 048
     Dates: start: 20111209
  11. TRANSIPEG [Concomitant]
     Dosage: 1 DF DAILY

REACTIONS (1)
  - BRADYCARDIA [None]
